FAERS Safety Report 14084441 (Version 1)
Quarter: 2017Q4

REPORT INFORMATION
  Report Type: Spontaneous
  Country: US (occurrence: None)
  Receive Date: 20171013
  Receipt Date: 20171013
  Transmission Date: 20180321
  Serious: No
  Sender: FDA-Public Use
  Company Number: None

PATIENT
  Age: 51 Year
  Sex: Female

DRUGS (12)
  1. CALCIUM [Concomitant]
     Active Substance: CALCIUM
  2. GABAPENTIN. [Concomitant]
     Active Substance: GABAPENTIN
  3. URSODIOL. [Concomitant]
     Active Substance: URSODIOL
  4. OCALIVA [Suspect]
     Active Substance: OBETICHOLIC ACID
     Indication: BILIARY CIRRHOSIS PRIMARY
     Route: 048
     Dates: start: 20170915
  5. DHEA [Concomitant]
     Active Substance: PRASTERONE
  6. FISH OIL [Concomitant]
     Active Substance: FISH OIL
  7. MELOXICAM. [Concomitant]
     Active Substance: MELOXICAM
  8. VALCYTE [Concomitant]
     Active Substance: VALGANCICLOVIR HYDROCHLORIDE
  9. VITAMIN D [Concomitant]
     Active Substance: CHOLECALCIFEROL
  10. ASPIRIN. [Concomitant]
     Active Substance: ASPIRIN
  11. CHERRY. [Concomitant]
     Active Substance: CHERRY
  12. VALSTAR [Concomitant]
     Active Substance: VALRUBICIN

REACTIONS (7)
  - Fatigue [None]
  - Paraesthesia [None]
  - Arthritis [None]
  - Arthralgia [None]
  - Hypoaesthesia [None]
  - Therapy cessation [None]
  - Pruritus [None]

NARRATIVE: CASE EVENT DATE: 20171011
